FAERS Safety Report 4692452-7 (Version None)
Quarter: 2005Q2

REPORT INFORMATION
  Report Type: 
  Country: None (occurrence: None)
  Receive Date: 20050613
  Receipt Date: 20050425
  Transmission Date: 20051028
  Serious: Yes (Hospitalization)
  Sender: FDA-Public Use
  Company Number: 2005-00880

PATIENT
  Age: 53 Year
  Sex: Male
  Weight: 107.9 kg

DRUGS (2)
  1. VELCADE [Suspect]
     Indication: MULTIPLE MYELOMA
     Route: 065
     Dates: start: 20050301, end: 20050421
  2. GLUCOPHAGE [Concomitant]

REACTIONS (1)
  - HAEMOGLOBIN DECREASED [None]
